FAERS Safety Report 4766258-4 (Version None)
Quarter: 2005Q3

REPORT INFORMATION
  Report Type: 
  Country: None (occurrence: None)
  Receive Date: 20050912
  Receipt Date: 20050609
  Transmission Date: 20060218
  Serious: Yes (Hospitalization, Other)
  Sender: FDA-Public Use
  Company Number: US-MERCK-0506USA01885

PATIENT
  Age: 55 Year
  Sex: Female
  Weight: 86 kg

DRUGS (11)
  1. VIOXX [Suspect]
     Indication: OSTEOARTHRITIS
     Route: 048
     Dates: start: 20030101, end: 20030501
  2. VIOXX [Suspect]
     Indication: BACK PAIN
     Route: 048
     Dates: start: 20030101, end: 20030501
  3. ATENOLOL [Concomitant]
     Indication: HEART RATE INCREASED
     Route: 065
     Dates: start: 19800101
  4. NORVASC [Concomitant]
     Indication: BLOOD PRESSURE
     Route: 065
     Dates: start: 20030101
  5. COLESTID [Concomitant]
     Indication: BLOOD CHOLESTEROL INCREASED
     Route: 065
     Dates: start: 20020101
  6. PROZAC [Concomitant]
     Indication: DEPRESSION
     Route: 065
     Dates: start: 20000101
  7. DEPAKOTE [Concomitant]
     Indication: MIGRAINE
     Route: 065
     Dates: start: 20020101
  8. PREVACID [Concomitant]
     Route: 065
  9. STALEVO 100 [Concomitant]
     Route: 065
  10. ZANAFLEX [Concomitant]
     Route: 065
  11. SYNTHROID [Concomitant]
     Route: 065

REACTIONS (11)
  - CEREBROVASCULAR ACCIDENT [None]
  - DEEP VEIN THROMBOSIS [None]
  - DEPRESSION [None]
  - DYSPNOEA [None]
  - ERYTHEMA [None]
  - MYOCARDIAL INFARCTION [None]
  - OEDEMA PERIPHERAL [None]
  - PARKINSON'S DISEASE [None]
  - POST-TRAUMATIC STRESS DISORDER [None]
  - RENAL FAILURE ACUTE [None]
  - TREMOR [None]
